FAERS Safety Report 22316704 (Version 1)
Quarter: 2023Q2

REPORT INFORMATION
  Report Type: Spontaneous
  Country: US (occurrence: None)
  Receive Date: 20230514
  Receipt Date: 20230514
  Transmission Date: 20230722
  Serious: No
  Sender: FDA-Public Use
  Company Number: 2023A108933

PATIENT
  Sex: Female
  Weight: 78 kg

DRUGS (1)
  1. SYMBICORT [Suspect]
     Active Substance: BUDESONIDE\FORMOTEROL FUMARATE DIHYDRATE
     Indication: Asthma
     Dosage: 120 INHALATIONS 80/4.5 MCG
     Route: 055
     Dates: start: 202301

REACTIONS (7)
  - Visual impairment [Unknown]
  - Hypoacusis [Unknown]
  - Cough [Unknown]
  - Wrong technique in device usage process [Unknown]
  - Device delivery system issue [Unknown]
  - Device use issue [Unknown]
  - Drug dose omission by device [Unknown]
